FAERS Safety Report 11850524 (Version 1)
Quarter: 2015Q4

REPORT INFORMATION
  Report Type: Spontaneous
  Country: US (occurrence: US)
  Receive Date: 20151218
  Receipt Date: 20151218
  Transmission Date: 20160305
  Serious: No
  Sender: FDA-Public Use
  Company Number: US-JNJFOC-20151108537

PATIENT
  Age: 81 Year
  Sex: Male
  Weight: 86.18 kg

DRUGS (2)
  1. TYLENOL EXTRA STRENGTH [Suspect]
     Active Substance: ACETAMINOPHEN
     Route: 048
  2. TYLENOL EXTRA STRENGTH [Suspect]
     Active Substance: ACETAMINOPHEN
     Indication: PRODUCT USED FOR UNKNOWN INDICATION
     Dosage: TOOK MORE THAN 2 CAPLETS
     Route: 048
     Dates: end: 20151106

REACTIONS (2)
  - Incorrect dose administered [Unknown]
  - Somnolence [Unknown]

NARRATIVE: CASE EVENT DATE: 20151106
